FAERS Safety Report 11945130 (Version 2)
Quarter: 2016Q1

REPORT INFORMATION
  Report Type: Spontaneous
  Country: US (occurrence: US)
  Receive Date: 20160125
  Receipt Date: 20160128
  Transmission Date: 20160526
  Serious: Yes (Hospitalization)
  Sender: FDA-Public Use
  Company Number: US-VERTEX PHARMACEUTICALS-2016-000284

PATIENT
  Age: 51 Year
  Sex: Female

DRUGS (5)
  1. CAYSTON [Concomitant]
     Active Substance: AZTREONAM
  2. LEVALBUTEROL. [Concomitant]
     Active Substance: LEVALBUTEROL
  3. KALYDECO [Suspect]
     Active Substance: IVACAFTOR
     Indication: CYSTIC FIBROSIS
     Dosage: 150 MG, BID
     Route: 048
     Dates: start: 20150106
  4. VITAMIN D3 [Concomitant]
     Active Substance: CHOLECALCIFEROL
  5. FERROUS SULFATE [Concomitant]
     Active Substance: FERROUS SULFATE\FERROUS SULFATE, DRIED

REACTIONS (1)
  - Cystic fibrosis respiratory infection suppression [Unknown]

NARRATIVE: CASE EVENT DATE: 20160106
